FAERS Safety Report 5664486-7 (Version None)
Quarter: 2008Q1

REPORT INFORMATION
  Report Type: 
  Country: None (occurrence: None)
  Receive Date: 20080314
  Receipt Date: 20080303
  Transmission Date: 20080703
  Serious: Yes (Hospitalization, Disabling)
  Sender: FDA-Public Use
  Company Number: B0502382A

PATIENT
  Age: 21 Year
  Sex: Female

DRUGS (4)
  1. LAMICTAL [Suspect]
     Indication: EPILEPSY
     Route: 048
     Dates: start: 20050718, end: 20050801
  2. DEPAKENE [Concomitant]
     Indication: EPILEPSY
     Route: 048
  3. RIVOTRIL [Concomitant]
     Dosage: 2MG PER DAY
     Route: 048
  4. ORAL CONTRACEPTION [Concomitant]
     Route: 048

REACTIONS (48)
  - ABDOMINAL PAIN [None]
  - ALOPECIA [None]
  - ALTERED STATE OF CONSCIOUSNESS [None]
  - ANURIA [None]
  - ANXIETY [None]
  - BLINDNESS UNILATERAL [None]
  - BLISTER [None]
  - BLOOD CREATININE INCREASED [None]
  - BURNING SENSATION [None]
  - COAGULOPATHY [None]
  - CONJUNCTIVAL HYPERAEMIA [None]
  - CSF GLUCOSE DECREASED [None]
  - CYTOLYTIC HEPATITIS [None]
  - DEHYDRATION [None]
  - DELIRIUM [None]
  - DIARRHOEA [None]
  - DISORIENTATION [None]
  - DISSEMINATED INTRAVASCULAR COAGULATION [None]
  - EPIDERMOLYSIS BULLOSA [None]
  - GENERAL PHYSICAL HEALTH DETERIORATION [None]
  - HAEMATOCHEZIA [None]
  - HEADACHE [None]
  - HEPATIC STEATOSIS [None]
  - HYPOTENSION [None]
  - HYPOXIA [None]
  - INCOHERENT [None]
  - INFECTION [None]
  - INTRA-ABDOMINAL HAEMORRHAGE [None]
  - MUSCULOSKELETAL STIFFNESS [None]
  - NAUSEA [None]
  - NEUROMYOPATHY [None]
  - OEDEMA [None]
  - OXYGEN SATURATION DECREASED [None]
  - PALLOR [None]
  - PYREXIA [None]
  - RASH [None]
  - RENAL FAILURE ACUTE [None]
  - RESPIRATORY DISTRESS [None]
  - SENSORY LOSS [None]
  - SKIN LESION [None]
  - TACHYCARDIA [None]
  - TACHYPNOEA [None]
  - THROMBOCYTOPENIA [None]
  - TOXIC EPIDERMAL NECROLYSIS [None]
  - TOXIC SKIN ERUPTION [None]
  - TREMOR [None]
  - URINE OUTPUT DECREASED [None]
  - WEIGHT DECREASED [None]
